FAERS Safety Report 17225851 (Version 8)
Quarter: 2020Q3

REPORT INFORMATION
  Report Type: Report from Study
  Country: US (occurrence: US)
  Receive Date: 20200102
  Receipt Date: 20200702
  Transmission Date: 20201102
  Serious: Yes (Death, Hospitalization, Other)
  Sender: FDA-Public Use
  Company Number: US-ACTELION-A-US2017-152358

PATIENT
  Age: 55 Year
  Sex: Male
  Weight: 56.69 kg

DRUGS (13)
  1. LASIX [Concomitant]
     Active Substance: FUROSEMIDE
  2. POTASSIUM MAGNESIUM CITRATE [Concomitant]
  3. FOLIC ACID. [Concomitant]
     Active Substance: FOLIC ACID
     Dosage: 400 MCG, QD
     Route: 048
  4. CARVEDILOL. [Concomitant]
     Active Substance: CARVEDILOL
     Dosage: 3.125 MG, BID
     Route: 048
  5. WARFARIN [Concomitant]
     Active Substance: WARFARIN
     Dosage: 7.5 MG, QD
     Route: 048
  6. AMOXICILLIN. [Concomitant]
     Active Substance: AMOXICILLIN
     Dosage: 875 MG, QD
     Route: 048
  7. HYDROXYUREA. [Concomitant]
     Active Substance: HYDROXYUREA
     Dosage: 500 MG, QD
     Route: 048
  8. OPSUMIT [Suspect]
     Active Substance: MACITENTAN
     Indication: PULMONARY HYPERTENSION
     Dosage: 10 MG, QD
     Route: 048
     Dates: start: 20170216, end: 20200219
  9. ALLOPURINOL. [Concomitant]
     Active Substance: ALLOPURINOL
     Dosage: 200 MG, BID
     Route: 048
     Dates: start: 20171208
  10. OXYGEN. [Concomitant]
     Active Substance: OXYGEN
     Dosage: 2 L, PRN
  11. TYLENOL [Concomitant]
     Active Substance: ACETAMINOPHEN
     Dosage: 650 MG, PRN
     Route: 048
  12. ALBUTEROL. [Concomitant]
     Active Substance: ALBUTEROL
     Dosage: 8 G, PRN
  13. BUMEX [Concomitant]
     Active Substance: BUMETANIDE
     Dosage: 1 MG, QD
     Route: 048

REACTIONS (27)
  - Orthopnoea [Recovered/Resolved with Sequelae]
  - Packed red blood cell transfusion [Unknown]
  - Hypoxia [Recovered/Resolved]
  - Aspartate aminotransferase increased [Unknown]
  - Cardiac flutter [Recovered/Resolved with Sequelae]
  - Skin weeping [Recovered/Resolved with Sequelae]
  - Sickle cell disease [Unknown]
  - Weight increased [Recovered/Resolved]
  - Haemoglobin decreased [Unknown]
  - Oedema [Unknown]
  - Productive cough [Recovered/Resolved]
  - Blood bilirubin increased [Recovered/Resolved with Sequelae]
  - Abdominal distension [Recovered/Resolved with Sequelae]
  - Oedema peripheral [Recovered/Resolved]
  - Dyspnoea [Recovered/Resolved with Sequelae]
  - Fluid overload [Recovered/Resolved]
  - Fatigue [Recovered/Resolved]
  - Asthenia [Recovered/Resolved]
  - Blood albumin decreased [Unknown]
  - Organ failure [Fatal]
  - Pulmonary hypertension [Recovered/Resolved with Sequelae]
  - Peripheral swelling [Recovered/Resolved with Sequelae]
  - Cardiac arrest [Unknown]
  - Cardiac failure chronic [Unknown]
  - Pyrexia [Recovered/Resolved]
  - Gout [Unknown]
  - Dyspnoea exertional [Recovered/Resolved with Sequelae]

NARRATIVE: CASE EVENT DATE: 20170501
